FAERS Safety Report 9007176 (Version 3)
Quarter: 2013Q1

REPORT INFORMATION
  Report Type: Spontaneous
  Country: US (occurrence: US)
  Receive Date: 20130110
  Receipt Date: 20130206
  Transmission Date: 20140127
  Serious: Yes (Death, Life-Threatening)
  Sender: FDA-Public Use
  Company Number: US-B.I. PHARMACEUTICALS,INC./RIDGEFIELD-2013-BI-00296BP

PATIENT
  Sex: Female

DRUGS (2)
  1. PRADAXA [Suspect]
     Dates: end: 2012
  2. COUMADIN [Suspect]
     Dates: start: 2012

REACTIONS (2)
  - Cerebrovascular accident [Fatal]
  - Haemorrhage intracranial [Unknown]
